FAERS Safety Report 8998244 (Version 1)
Quarter: 2013Q1

REPORT INFORMATION
  Report Type: Report from Study
  Country: CA (occurrence: CA)
  Receive Date: 20130104
  Receipt Date: 20130104
  Transmission Date: 20140127
  Serious: Yes (Hospitalization)
  Sender: FDA-Public Use
  Company Number: CA-JNJFOC-20130101285

PATIENT
  Sex: Male
  Weight: 69.85 kg

DRUGS (13)
  1. STELARA [Suspect]
     Indication: PSORIASIS
     Route: 058
  2. DOVONEX [Concomitant]
     Indication: PSORIASIS
  3. COVERSYL [Concomitant]
  4. POTASSIUM [Concomitant]
  5. SIMVASTATIN [Concomitant]
  6. ASPIRIN [Concomitant]
  7. BISOPROLOL [Concomitant]
  8. TOPSYM [Concomitant]
  9. PANTOLOC [Concomitant]
  10. TEMAZEPAM [Concomitant]
  11. EMPRACET [Concomitant]
  12. NITROGLYCERIN [Concomitant]
  13. LASIX [Concomitant]

REACTIONS (1)
  - Respiratory distress [Recovered/Resolved]
